FAERS Safety Report 26009675 (Version 1)
Quarter: 2025Q4

REPORT INFORMATION
  Report Type: Spontaneous
  Country: EU (occurrence: EU)
  Receive Date: 20251107
  Receipt Date: 20251107
  Transmission Date: 20260117
  Serious: Yes (Life-Threatening, Hospitalization)
  Sender: OXFORD PHARMACEUTICALS, LLC
  Company Number: EU-Oxford Pharmaceuticals, LLC-2188071

PATIENT
  Age: 11 Year
  Sex: Male
  Weight: 35 kg

DRUGS (1)
  1. LEVETIRACETAM [Suspect]
     Active Substance: LEVETIRACETAM
     Indication: Seizure

REACTIONS (2)
  - Metabolic acidosis [Recovered/Resolved]
  - Off label use [Unknown]
